FAERS Safety Report 6174324-4 (Version None)
Quarter: 2009Q2

REPORT INFORMATION
  Report Type: 
  Country: None (occurrence: None)
  Receive Date: 20090430
  Receipt Date: 20080515
  Transmission Date: 20091009
  Serious: No
  Sender: FDA-Public Use
  Company Number: US-ASTRAZENECA-2008UW10099

PATIENT
  Sex: Female
  Weight: 67.1 kg

DRUGS (2)
  1. NEXIUM [Suspect]
     Indication: HELICOBACTER GASTRITIS
     Route: 048
     Dates: start: 20080401
  2. TAMOXIFEN CITRATE [Concomitant]

REACTIONS (2)
  - DYSGEUSIA [None]
  - ORAL DISCOMFORT [None]
